FAERS Safety Report 6138390-4 (Version None)
Quarter: 2009Q1

REPORT INFORMATION
  Report Type: 
  Country: None (occurrence: None)
  Receive Date: 20090327
  Receipt Date: 20090327
  Transmission Date: 20090719
  Serious: No
  Sender: FDA-Public Use
  Company Number: None

PATIENT
  Age: 56 Day
  Sex: Male
  Weight: 92.9874 kg

DRUGS (1)
  1. CRESTOR [Suspect]
     Indication: BLOOD CHOLESTEROL INCREASED
     Dosage: 10MG ONE PER DAY
     Dates: start: 20090312, end: 20090324

REACTIONS (2)
  - PRURITUS [None]
  - RASH [None]
